FAERS Safety Report 6472867-7 (Version None)
Quarter: 2009Q4

REPORT INFORMATION
  Report Type: 
  Country: None (occurrence: None)
  Receive Date: 20091203
  Receipt Date: 20091123
  Transmission Date: 20100525
  Serious: Yes (Death, Other)
  Sender: FDA-Public Use
  Company Number: US-BAXTER-2009BH016394

PATIENT
  Age: 68 Year
  Sex: Male

DRUGS (1)
  1. STERILE WATER [Suspect]
     Indication: INTRAOPERATIVE CARE
     Route: 065
     Dates: start: 20091016, end: 20091016

REACTIONS (3)
  - DRUG ADMINISTRATION ERROR [None]
  - HAEMATURIA [None]
  - RENAL FAILURE [None]
